FAERS Safety Report 20224404 (Version 1)
Quarter: 2021Q4

REPORT INFORMATION
  Report Type: Spontaneous
  Country: US (occurrence: None)
  Receive Date: 20211223
  Receipt Date: 20211223
  Transmission Date: 20220304
  Serious: Yes (Hospitalization)
  Sender: FDA-Public Use
  Company Number: None

PATIENT
  Age: 76 Year
  Sex: Male

DRUGS (1)
  1. BAMLANIVIMAB\ETESEVIMAB [Suspect]
     Active Substance: BAMLANIVIMAB\ETESEVIMAB
     Indication: COVID-19
     Dosage: OTHER FREQUENCY : ONCE;?
     Route: 042

REACTIONS (7)
  - Back pain [None]
  - Infusion related reaction [None]
  - Grimacing [None]
  - Moaning [None]
  - Restlessness [None]
  - Muscle rigidity [None]
  - Blood pressure increased [None]

NARRATIVE: CASE EVENT DATE: 20211218
